FAERS Safety Report 7341705-2 (Version None)
Quarter: 2011Q1

REPORT INFORMATION
  Report Type: 
  Country: None (occurrence: None)
  Receive Date: 20110309
  Receipt Date: 20110209
  Transmission Date: 20110831
  Serious: No
  Sender: FDA-Public Use
  Company Number: US-BAYER-200934794NA

PATIENT
  Sex: Female

DRUGS (4)
  1. TRASYLOL [Suspect]
     Indication: PRODUCT USED FOR UNKNOWN INDICATION
  2. DEMADEX [Concomitant]
     Dosage: 20 MG, UNK
  3. RYTHMOL [Concomitant]
     Dosage: 10 MG, UNK
  4. KDUR [Concomitant]
     Dosage: 20 MEQ, UNK

REACTIONS (4)
  - INJURY [None]
  - EMOTIONAL DISTRESS [None]
  - DEPRESSION [None]
  - NERVOUSNESS [None]
